FAERS Safety Report 23453527 (Version 1)
Quarter: 2024Q1

REPORT INFORMATION
  Report Type: Report from Study
  Country: NL (occurrence: NL)
  Receive Date: 20240129
  Receipt Date: 20240129
  Transmission Date: 20240410
  Serious: Yes (Death, Other)
  Sender: FDA-Public Use
  Company Number: NL-VER-202400012

PATIENT
  Age: 94 Year
  Sex: Male

DRUGS (3)
  1. TRIPTORELIN PAMOATE [Suspect]
     Active Substance: TRIPTORELIN PAMOATE
     Indication: Prostate cancer
     Dosage: 1.00 X PER 24 WEEKS; ZINR: 15533212
     Route: 030
     Dates: start: 20230726
  2. TRIPTORELIN PAMOATE [Suspect]
     Active Substance: TRIPTORELIN PAMOATE
     Indication: Prostate cancer
     Dosage: 1.00 X PER 24 WEEKS, ZINR: 15533212
     Route: 030
     Dates: start: 20210408
  3. TRIPTORELIN PAMOATE [Suspect]
     Active Substance: TRIPTORELIN PAMOATE
     Indication: Prostate cancer
     Dosage: 22.5 MG, 1.00 X PER 24 WEEKS; ZINR: 15533212
     Route: 030
     Dates: start: 20230110

REACTIONS (1)
  - Cardiac failure [Fatal]

NARRATIVE: CASE EVENT DATE: 20240123
